FAERS Safety Report 9998200 (Version 1)
Quarter: 2014Q1

REPORT INFORMATION
  Report Type: Spontaneous
  Country: US (occurrence: US)
  Receive Date: 20140311
  Receipt Date: 20140311
  Transmission Date: 20141002
  Serious: No
  Sender: FDA-Public Use
  Company Number: US-009507513-1403USA002616

PATIENT
  Age: 52 Year
  Sex: Female

DRUGS (1)
  1. ASMANEX TWISTHALER [Suspect]
     Indication: ASTHMA
     Dosage: 2 DF, BID
     Dates: start: 2012

REACTIONS (3)
  - Bronchitis [Not Recovered/Not Resolved]
  - Asthma [Unknown]
  - Product quality issue [Unknown]
